FAERS Safety Report 20922030 (Version 1)
Quarter: 2022Q2

REPORT INFORMATION
  Report Type: Other
  Country: JP (occurrence: JP)
  Receive Date: 20220607
  Receipt Date: 20220607
  Transmission Date: 20220721
  Serious: Yes (Other)
  Sender: FDA-Public Use
  Company Number: JP-CHUGAI-2022020271

PATIENT
  Age: 57 Year
  Sex: Male
  Weight: 63.3 kg

DRUGS (10)
  1. TECENTRIQ [Suspect]
     Active Substance: ATEZOLIZUMAB
     Indication: Lung adenocarcinoma
     Dosage: 1200 MILLIGRAM, ONCE/4WEEKS
     Route: 041
     Dates: start: 20220207, end: 20220404
  2. TECENTRIQ [Suspect]
     Active Substance: ATEZOLIZUMAB
     Dosage: 1200 MILLIGRAM
     Route: 041
     Dates: start: 20220425
  3. AVASTIN [Suspect]
     Active Substance: BEVACIZUMAB
     Indication: Lung adenocarcinoma
     Dosage: 950 MILLIGRAM, QD
     Route: 041
     Dates: start: 20220207, end: 20220207
  4. AVASTIN [Suspect]
     Active Substance: BEVACIZUMAB
     Dosage: 870 MILLIGRAM, ONCE/4WEEKS
     Route: 041
     Dates: start: 20220307, end: 20220404
  5. AVASTIN [Suspect]
     Active Substance: BEVACIZUMAB
     Dosage: 870 MILLIGRAM
     Route: 041
     Dates: start: 20220425
  6. PACLITAXEL [Suspect]
     Active Substance: PACLITAXEL
     Indication: Lung adenocarcinoma
     Dosage: 300 MILLIGRAM, QD
     Route: 041
     Dates: start: 20220207, end: 20220207
  7. PACLITAXEL [Suspect]
     Active Substance: PACLITAXEL
     Dosage: 240 MILLIGRAM, QD
     Route: 041
     Dates: start: 20220307, end: 20220307
  8. PACLITAXEL [Suspect]
     Active Substance: PACLITAXEL
     Dosage: 200 MILLIGRAM, ONCE/3WEEKS
     Route: 041
     Dates: start: 20220404
  9. CARBOPLATIN [Concomitant]
     Active Substance: CARBOPLATIN
     Indication: Lung adenocarcinoma
     Dosage: 530 MILLIGRAM, ONCE/4WEEKS
     Route: 041
     Dates: start: 20220207, end: 20220307
  10. CARBOPLATIN [Concomitant]
     Active Substance: CARBOPLATIN
     Dosage: 490 MILLIGRAM, ONCE/3WEEKS
     Route: 041
     Dates: start: 20220404

REACTIONS (2)
  - Drug-induced liver injury [Recovered/Resolved]
  - Neuropathy peripheral [Recovering/Resolving]

NARRATIVE: CASE EVENT DATE: 20220224
